FAERS Safety Report 20429741 (Version 1)
Quarter: 2022Q1

REPORT INFORMATION
  Report Type: Spontaneous
  Country: US (occurrence: None)
  Receive Date: 20220203
  Receipt Date: 20220203
  Transmission Date: 20220423
  Serious: Yes (Life-Threatening)
  Sender: FDA-Public Use
  Company Number: None

PATIENT
  Age: 66 Year
  Sex: Male
  Weight: 93.4 kg

DRUGS (1)
  1. BARICITINIB [Suspect]
     Active Substance: BARICITINIB
     Indication: COVID-19 treatment
     Dates: start: 20220121, end: 20220201

REACTIONS (2)
  - Pulmonary embolism [None]
  - Cardiac ventricular disorder [None]

NARRATIVE: CASE EVENT DATE: 20220201
